FAERS Safety Report 11912458 (Version 4)
Quarter: 2016Q2

REPORT INFORMATION
  Report Type: Spontaneous
  Country: US (occurrence: US)
  Receive Date: 20160113
  Receipt Date: 20160426
  Transmission Date: 20160815
  Serious: Yes (Hospitalization, Other)
  Sender: FDA-Public Use
  Company Number: US-BEH-2016057534

PATIENT
  Age: 57 Year
  Sex: Male
  Weight: 86.6 kg

DRUGS (30)
  1. ACETAMINOPHEN. [Concomitant]
     Active Substance: ACETAMINOPHEN
  2. PROZAC [Concomitant]
     Active Substance: FLUOXETINE HYDROCHLORIDE
  3. CLARITHROMYCIN. [Concomitant]
     Active Substance: CLARITHROMYCIN
  4. KEFLEX [Concomitant]
     Active Substance: CEPHALEXIN
  5. EPIPEN [Concomitant]
     Active Substance: EPINEPHRINE
  6. ZANTAC [Concomitant]
     Active Substance: RANITIDINE HYDROCHLORIDE
  7. PROAIR HFA [Concomitant]
     Active Substance: ALBUTEROL SULFATE
  8. NEXIUM [Concomitant]
     Active Substance: ESOMEPRAZOLE MAGNESIUM
  9. HIZENTRA [Suspect]
     Active Substance: HUMAN IMMUNOGLOBULIN G
     Indication: IMMUNODEFICIENCY COMMON VARIABLE
     Route: 058
     Dates: start: 20150728
  10. PREDNISONE. [Concomitant]
     Active Substance: PREDNISONE
  11. NORCO [Concomitant]
     Active Substance: ACETAMINOPHEN\HYDROCODONE BITARTRATE
  12. LORAZEPAM. [Concomitant]
     Active Substance: LORAZEPAM
  13. SINGULAIR [Concomitant]
     Active Substance: MONTELUKAST SODIUM
  14. XOPENEX [Concomitant]
     Active Substance: LEVALBUTEROL HYDROCHLORIDE
  15. ZITHROMAX [Concomitant]
     Active Substance: AZITHROMYCIN DIHYDRATE
  16. LANSOPRAZOLE. [Concomitant]
     Active Substance: LANSOPRAZOLE
  17. ATIVAN [Concomitant]
     Active Substance: LORAZEPAM
  18. ALBUTEROL. [Concomitant]
     Active Substance: ALBUTEROL
  19. HIZENTRA [Suspect]
     Active Substance: HUMAN IMMUNOGLOBULIN G
     Dosage: HIZENTRA THERAPY START DATE ??-DEC-2010
  20. FLUNISOLIDE. [Concomitant]
     Active Substance: FLUNISOLIDE
  21. AMOXICILLIN. [Concomitant]
     Active Substance: AMOXICILLIN
  22. FAMOTIDINE. [Concomitant]
     Active Substance: FAMOTIDINE
  23. FLOVENT [Concomitant]
     Active Substance: FLUTICASONE PROPIONATE
  24. FLUOXETINE [Concomitant]
     Active Substance: FLUOXETINE HYDROCHLORIDE
  25. CETIRIZINE [Concomitant]
     Active Substance: CETIRIZINE HYDROCHLORIDE
  26. BACTRIM DS [Concomitant]
     Active Substance: SULFAMETHOXAZOLE\TRIMETHOPRIM
  27. FLUOXETINE [Concomitant]
     Active Substance: FLUOXETINE HYDROCHLORIDE
  28. PRAMIPEXOLE. [Concomitant]
     Active Substance: PRAMIPEXOLE
  29. MOTRIN [Concomitant]
     Active Substance: IBUPROFEN
  30. FLOVENT [Concomitant]
     Active Substance: FLUTICASONE PROPIONATE

REACTIONS (9)
  - Ventricular fibrillation [Unknown]
  - Coronary artery bypass [Recovering/Resolving]
  - Burns fourth degree [Recovering/Resolving]
  - Burns third degree [Recovering/Resolving]
  - Lower respiratory tract infection [Unknown]
  - Sinusitis [Unknown]
  - Cardiac arrest [Unknown]
  - Myocardial infarction [Recovering/Resolving]
  - Upper respiratory tract infection [Unknown]

NARRATIVE: CASE EVENT DATE: 20150801
